FAERS Safety Report 5265954-2 (Version None)
Quarter: 2007Q1

REPORT INFORMATION
  Report Type: 
  Country: None (occurrence: None)
  Receive Date: 20070313
  Receipt Date: 20070313
  Transmission Date: 20070707
  Serious: No
  Sender: FDA-Public Use
  Company Number: None

PATIENT
  Age: 55 Year
  Sex: Female
  Weight: 83.0083 kg

DRUGS (1)
  1. CREST PRO-HEALTH CLEAN MINT FLAVOR PROCTOR AND GAMBLE [Suspect]
     Dates: start: 20070308, end: 20070308

REACTIONS (1)
  - PHARMACEUTICAL PRODUCT COMPLAINT [None]
